FAERS Safety Report 4302748-6 (Version None)
Quarter: 2004Q1

REPORT INFORMATION
  Report Type: 
  Country: None (occurrence: None)
  Receive Date: 20040224
  Receipt Date: 20021219
  Transmission Date: 20041129
  Serious: Yes (Hospitalization)
  Sender: FDA-Public Use
  Company Number: US-BRISTOL-MYERS SQUIBB COMPANY-12142741

PATIENT
  Age: 53 Year
  Sex: Male

DRUGS (12)
  1. KENALOG [Suspect]
     Indication: SKIN DISORDER
     Dosage: DOSE: FIRST INJECTION: 80MG, SECOND INJECTION: 60MG, THIRD INJECTION 80MG  ROUTE: ^INJECTION^
     Dates: start: 20020101, end: 20020101
  2. VIOXX [Concomitant]
  3. THEO-DUR [Concomitant]
  4. NORVASC [Concomitant]
  5. PULMICORT [Concomitant]
  6. CLARITIN [Concomitant]
  7. IPRATROPIUM BROMIDE [Concomitant]
  8. ALBUTEROL [Concomitant]
  9. FLONASE [Concomitant]
  10. AUGMENTIN [Concomitant]
  11. PREVACID [Concomitant]
  12. LAC-HYDRIN [Concomitant]

REACTIONS (1)
  - CUSHINGOID [None]
